FAERS Safety Report 25699050 (Version 1)
Quarter: 2025Q3

REPORT INFORMATION
  Report Type: Spontaneous
  Country: RU (occurrence: RU)
  Receive Date: 20250819
  Receipt Date: 20250819
  Transmission Date: 20251020
  Serious: Yes (Other)
  Sender: TAKEDA
  Company Number: RU-TAKEDA-2025TUS072830

PATIENT
  Age: 15 Year
  Sex: Male
  Weight: 56 kg

DRUGS (6)
  1. ENTYVIO [Suspect]
     Active Substance: VEDOLIZUMAB
     Indication: Crohn^s disease
  2. TOFACITINIB CITRATE [Suspect]
     Active Substance: TOFACITINIB CITRATE
     Indication: Crohn^s disease
     Dosage: 5 MILLIGRAM, BID
     Dates: start: 202304
  3. TOFACITINIB CITRATE [Suspect]
     Active Substance: TOFACITINIB CITRATE
  4. URSODIOL [Concomitant]
     Active Substance: URSODIOL
     Indication: Hepatic cirrhosis
     Dosage: 500 MILLIGRAM, BID
     Dates: start: 202303
  5. NEXIUM [Concomitant]
     Active Substance: ESOMEPRAZOLE MAGNESIUM
     Indication: Gastritis
     Dosage: 20 MILLIGRAM, BID
  6. PENTASA [Concomitant]
     Active Substance: MESALAMINE
     Indication: Crohn^s disease
     Dosage: 2000 MILLIGRAM, BID
     Dates: start: 2021

REACTIONS (2)
  - Gingival bleeding [Unknown]
  - Gingival hypertrophy [Not Recovered/Not Resolved]

NARRATIVE: CASE EVENT DATE: 20250301
